FAERS Safety Report 9576739 (Version 1)
Quarter: 2013Q4

REPORT INFORMATION
  Report Type: Spontaneous
  Country: US (occurrence: US)
  Receive Date: 20131001
  Receipt Date: 20131001
  Transmission Date: 20140711
  Serious: No
  Sender: FDA-Public Use
  Company Number: US-AMGEN-USASP2013004318

PATIENT
  Sex: Female

DRUGS (4)
  1. ENBREL [Suspect]
     Indication: RHEUMATOID ARTHRITIS
     Dosage: 50 MG, QWK
     Route: 058
  2. METHOTREXATE [Concomitant]
     Dosage: UNK
  3. ARTHROTEC [Concomitant]
     Dosage: 50 UNK, UNK
  4. FOLIC ACID [Concomitant]
     Dosage: UNK

REACTIONS (1)
  - Upper respiratory tract infection [Unknown]
